FAERS Safety Report 4421202-4 (Version None)
Quarter: 2004Q3

REPORT INFORMATION
  Report Type: 
  Country: None (occurrence: None)
  Receive Date: 20040707
  Receipt Date: 20040318
  Transmission Date: 20050211
  Serious: No
  Sender: FDA-Public Use
  Company Number: SU-2004-002230

PATIENT
  Age: 43 Year
  Sex: Female

DRUGS (1)
  1. BENICAR HCT [Suspect]
     Indication: HYPERTENSION
     Dosage: 40.125 MG PO
     Route: 048

REACTIONS (3)
  - CHILLS [None]
  - ENERGY INCREASED [None]
  - FEELING COLD [None]
